FAERS Safety Report 6945452-8 (Version None)
Quarter: 2010Q3

REPORT INFORMATION
  Report Type: 
  Country: None (occurrence: None)
  Receive Date: 20100823
  Receipt Date: 20100816
  Transmission Date: 20110219
  Serious: Yes (Hospitalization)
  Sender: FDA-Public Use
  Company Number: US-GDP-10408782

PATIENT
  Age: 77 Year
  Sex: Female

DRUGS (2)
  1. ORACEA [Suspect]
     Indication: ROSACEA
     Dosage: 40 MG QD ORAL
     Route: 048
     Dates: start: 20100101, end: 20100101
  2. VERAPAMIL [Concomitant]

REACTIONS (1)
  - LOSS OF CONSCIOUSNESS [None]
